FAERS Safety Report 5271058-5 (Version None)
Quarter: 2007Q1

REPORT INFORMATION
  Report Type: 
  Country: None (occurrence: None)
  Receive Date: 20070315
  Receipt Date: 20070306
  Transmission Date: 20070707
  Serious: Yes (Other)
  Sender: FDA-Public Use
  Company Number: AMI0001310

PATIENT
  Age: 17 Year
  Sex: Female

DRUGS (2)
  1. PENICILLAMINE [Suspect]
     Indication: HEPATO-LENTICULAR DEGENERATION
  2. ZINC [Suspect]
     Indication: HEPATO-LENTICULAR DEGENERATION

REACTIONS (4)
  - HAEMOLYSIS [None]
  - JAUNDICE [None]
  - LIVER DISORDER [None]
  - MENTAL STATUS CHANGES [None]
